FAERS Safety Report 24042899 (Version 1)
Quarter: 2024Q3

REPORT INFORMATION
  Report Type: Spontaneous
  Country: VN (occurrence: VN)
  Receive Date: 20240702
  Receipt Date: 20240702
  Transmission Date: 20241016
  Serious: Yes (Other)
  Sender: BAYER
  Company Number: VN-BAYER-2024A094521

PATIENT
  Age: 66 Year
  Sex: Female

DRUGS (1)
  1. ULTRAVIST [Suspect]
     Active Substance: IOPROMIDE
     Indication: Computerised tomogram abdomen
     Dosage: UNK, ONCE
     Dates: start: 20240613, end: 20240613

REACTIONS (11)
  - Anaphylactic reaction [None]
  - Skin disorder [None]
  - Conjunctival hyperaemia [None]
  - Nervousness [Recovering/Resolving]
  - Flushing [Recovering/Resolving]
  - Pruritus [Recovering/Resolving]
  - Urticaria [Recovering/Resolving]
  - Dyspnoea [Recovering/Resolving]
  - Palpitations [Recovering/Resolving]
  - Pallor [None]
  - Erythema [None]

NARRATIVE: CASE EVENT DATE: 20240613
